FAERS Safety Report 8249201-5 (Version None)
Quarter: 2012Q1

REPORT INFORMATION
  Report Type: 
  Country: None (occurrence: None)
  Receive Date: 20120328
  Receipt Date: 20120315
  Transmission Date: 20120608
  Serious: Yes (Death, Hospitalization)
  Sender: FDA-Public Use
  Company Number: UTC-016308

PATIENT
  Age: 47 Year
  Sex: Female
  Weight: 50.9 kg

DRUGS (3)
  1. ADCIRCA [Concomitant]
  2. REMODULIN [Suspect]
     Indication: PULMONARY HYPERTENSION
     Dosage: 4.2768 UG/KG (0.00297 UG/KG, 1 IN 1 MIN), INTRAVENOUS
     Route: 042
  3. DIURETICS (DIURETICS) [Concomitant]

REACTIONS (4)
  - INSOMNIA [None]
  - SEPSIS [None]
  - NAUSEA [None]
  - DIARRHOEA [None]
